FAERS Safety Report 7429989-3 (Version None)
Quarter: 2011Q2

REPORT INFORMATION
  Report Type: 
  Country: None (occurrence: None)
  Receive Date: 20110421
  Receipt Date: 20110408
  Transmission Date: 20111010
  Serious: Yes (Other)
  Sender: FDA-Public Use
  Company Number: US-GENZYME-CAMP-1001563

PATIENT
  Sex: Female

DRUGS (4)
  1. CAMPATH [Suspect]
     Dosage: 12 MG, QD
     Route: 042
     Dates: start: 20100203, end: 20100205
  2. METHYLPREDNISOLONE [Concomitant]
     Indication: MULTIPLE SCLEROSIS
     Dosage: 1 G, UNK
     Route: 042
     Dates: start: 20090126, end: 20090128
  3. METHYLPREDNISOLONE [Concomitant]
     Dosage: 1 G, UNK
     Route: 042
     Dates: start: 20100203, end: 20100205
  4. CAMPATH [Suspect]
     Indication: MULTIPLE SCLEROSIS
     Dosage: 12 MG, QD
     Route: 042
     Dates: start: 20090126, end: 20090130

REACTIONS (1)
  - MALIGNANT MELANOMA IN SITU [None]
